FAERS Safety Report 8225378-2 (Version None)
Quarter: 2012Q1

REPORT INFORMATION
  Report Type: 
  Country: None (occurrence: None)
  Receive Date: 20120321
  Receipt Date: 20120306
  Transmission Date: 20120608
  Serious: Yes (Life-Threatening, Hospitalization, Other)
  Sender: FDA-Public Use
  Company Number: DE-WATSON-2012-03974

PATIENT
  Age: 79 Year
  Sex: Male
  Weight: 99 kg

DRUGS (11)
  1. AMITRIPTYLINE HCL [Concomitant]
     Indication: ANXIETY
     Dosage: 25 MG DAILY FOR 14 DAYS EVERY THIRD MONTH
     Route: 048
     Dates: start: 19990101, end: 20110318
  2. ASPIRIN [Concomitant]
     Indication: PRODUCT USED FOR UNKNOWN INDICATION
     Dosage: 100 MG, DAILY
     Route: 048
     Dates: start: 19950101
  3. SIMVASTATIN [Concomitant]
     Indication: PRODUCT USED FOR UNKNOWN INDICATION
     Dosage: 1 DF, DAILY
     Dates: start: 19850101, end: 20110318
  4. IRBESARTAN [Concomitant]
     Indication: HYPERTENSION
     Dosage: 150 MG, DAILY
     Route: 048
     Dates: start: 19950101, end: 20110318
  5. AMLODIPINE [Concomitant]
     Indication: HYPERTENSION
     Dosage: 5 MG, DAILY
     Route: 048
     Dates: start: 19950101, end: 20110318
  6. EMSER                              /01106801/ [Concomitant]
     Indication: PRODUCT USED FOR UNKNOWN INDICATION
     Dosage: 1 DF, DAILY
     Route: 045
     Dates: start: 20080101, end: 20110318
  7. FUROSEMIDE [Suspect]
     Indication: PRODUCT USED FOR UNKNOWN INDICATION
     Dosage: 80 MG, DAILY
     Route: 048
     Dates: start: 20110101, end: 20110318
  8. ALLOPURINOL [Concomitant]
     Indication: HYPERURICAEMIA
     Dosage: 300 MG, DAILY
     Route: 048
     Dates: start: 19950101
  9. EMSER SALZ [Concomitant]
     Indication: PRODUCT USED FOR UNKNOWN INDICATION
     Dosage: 1 DF, DAILY
     Route: 045
     Dates: start: 20080101, end: 20110318
  10. FUROSEMIDE [Suspect]
     Dosage: 40 MG, DAILY
     Route: 048
     Dates: start: 19950101, end: 20110101
  11. COLDASTOP [Concomitant]
     Indication: PRODUCT USED FOR UNKNOWN INDICATION
     Dosage: 2 DF, DAILY
     Route: 045
     Dates: start: 20080101, end: 20110318

REACTIONS (1)
  - RENAL FAILURE ACUTE [None]
